FAERS Safety Report 24569269 (Version 2)
Quarter: 2025Q3

REPORT INFORMATION
  Report Type: Report from Study
  Country: US (occurrence: US)
  Receive Date: 20241031
  Receipt Date: 20250803
  Transmission Date: 20251021
  Serious: Yes (Other)
  Sender: ALEXION PHARMACEUTICALS
  Company Number: US-AstraZeneca-CH-00734011A

PATIENT
  Sex: Female

DRUGS (1)
  1. OSIMERTINIB [Suspect]
     Active Substance: OSIMERTINIB

REACTIONS (14)
  - Bone cancer [Unknown]
  - Blood pressure increased [Unknown]
  - Anaemia [Unknown]
  - Depressed mood [Unknown]
  - Nail growth abnormal [Unknown]
  - Weight decreased [Unknown]
  - Blood sodium abnormal [Unknown]
  - Renal disorder [Unknown]
  - Lung carcinoma cell type unspecified stage IV [Unknown]
  - Lung disorder [Unknown]
  - Dry skin [Unknown]
  - Alopecia [Unknown]
  - Weight gain poor [Unknown]
  - Decreased appetite [Unknown]
